FAERS Safety Report 6595416-1 (Version None)
Quarter: 2010Q1

REPORT INFORMATION
  Report Type: 
  Country: None (occurrence: None)
  Receive Date: 20100223
  Receipt Date: 20100208
  Transmission Date: 20100710
  Serious: Yes (Hospitalization)
  Sender: FDA-Public Use
  Company Number: JP-BAYER-200911109BYL

PATIENT
  Age: 35 Year
  Sex: Female
  Weight: 41 kg

DRUGS (8)
  1. BETAFERON [Suspect]
     Indication: MULTIPLE SCLEROSIS
     Dosage: TOTAL DAILY DOSE: 8 MIU
     Route: 058
     Dates: start: 20010101, end: 20010401
  2. GOODMIN [Concomitant]
     Indication: INSOMNIA
     Dosage: TOTAL DAILY DOSE: 1 DF
     Route: 048
     Dates: start: 19990101
  3. TEGRETOL [Concomitant]
     Dosage: TOTAL DAILY DOSE: 200 MG
     Route: 048
     Dates: start: 19990101
  4. LIORESAL [Concomitant]
     Dosage: TOTAL DAILY DOSE: 15 MG
     Route: 048
     Dates: start: 20000101
  5. AZANIN [Concomitant]
     Dosage: TOTAL DAILY DOSE: 25 MG
     Route: 048
     Dates: start: 20000101
  6. METHYCOBAL [Concomitant]
     Dosage: TOTAL DAILY DOSE: 1500 ?G
     Route: 048
     Dates: start: 20000101
  7. ONEALFA [Concomitant]
     Dosage: TOTAL DAILY DOSE: 1 ?G
     Route: 048
     Dates: start: 20000101
  8. TRYPTANOL [Concomitant]
     Dosage: TOTAL DAILY DOSE: 10 MG
     Route: 048
     Dates: start: 20000101

REACTIONS (1)
  - OPTIC NEURITIS [None]
